FAERS Safety Report 9290572 (Version 2)
Quarter: 2013Q2

REPORT INFORMATION
  Report Type: Spontaneous
  Country: BR (occurrence: BR)
  Receive Date: 20130515
  Receipt Date: 20130520
  Transmission Date: 20140414
  Serious: Yes (Other)
  Sender: FDA-Public Use
  Company Number: BR-PFIZER INC-2013143805

PATIENT
  Age: 62 Year
  Sex: Female

DRUGS (4)
  1. TRAMAL [Suspect]
     Indication: PAIN
     Dosage: ^ONE^ (UNSPECIFIED OTHERWISE), 4X/DAY
     Dates: start: 2010
  2. LYRICA [Suspect]
     Indication: FIBROMYALGIA
     Dosage: 1 CAPSULE (75 MG), 2X/DAY
     Dates: start: 2010
  3. FLUOXETINE [Concomitant]
     Indication: FIBROMYALGIA
     Dosage: UNK
     Dates: start: 2010
  4. OMEGA 3 [Concomitant]
     Dosage: UNK
     Dates: start: 201304

REACTIONS (8)
  - Pneumonia [Unknown]
  - Loss of consciousness [Unknown]
  - Depression [Unknown]
  - Musculoskeletal discomfort [Unknown]
  - Sinusitis [Unknown]
  - Bronchitis [Unknown]
  - Memory impairment [Unknown]
  - Drug ineffective [Unknown]
